FAERS Safety Report 24429377 (Version 3)
Quarter: 2025Q3

REPORT INFORMATION
  Report Type: Report from Study
  Country: US (occurrence: US)
  Receive Date: 20241011
  Receipt Date: 20250827
  Transmission Date: 20251020
  Serious: Yes (Other)
  Sender: EMD SERONO INC
  Company Number: US-Merck Healthcare KGaA-2024052770

PATIENT
  Sex: Female

DRUGS (2)
  1. MAVENCLAD [Suspect]
     Active Substance: CLADRIBINE
     Indication: Multiple sclerosis
     Dates: start: 20240819, end: 20240823
  2. MAVENCLAD [Suspect]
     Active Substance: CLADRIBINE
     Dates: start: 20240917, end: 20240921

REACTIONS (4)
  - White blood cell count decreased [Recovering/Resolving]
  - Supraventricular extrasystoles [Recovering/Resolving]
  - Blood glucose increased [Recovered/Resolved]
  - Neutrophil count increased [Unknown]
